FAERS Safety Report 10205300 (Version 1)
Quarter: 2014Q2

REPORT INFORMATION
  Report Type: Spontaneous
  Country: US (occurrence: US)
  Receive Date: 20140529
  Receipt Date: 20140529
  Transmission Date: 20141212
  Serious: No
  Sender: FDA-Public Use
  Company Number: US-SA-2014SA038950

PATIENT
  Age: 63 Year
  Sex: Male

DRUGS (4)
  1. LANTUS SOLOSTAR [Suspect]
     Indication: TYPE 2 DIABETES MELLITUS
     Dosage: DOSE:10 UNIT(S)
     Route: 065
  2. SOLOSTAR [Concomitant]
  3. GLUCOPHAGE [Concomitant]
  4. INSULIN [Concomitant]

REACTIONS (5)
  - Blood glucose increased [Unknown]
  - Blood glucose decreased [Unknown]
  - Night sweats [Unknown]
  - Drug dose omission [Unknown]
  - Incorrect product storage [Unknown]
